FAERS Safety Report 25500016 (Version 1)
Quarter: 2025Q3

REPORT INFORMATION
  Report Type: Spontaneous
  Country: CN (occurrence: CN)
  Receive Date: 20250701
  Receipt Date: 20250701
  Transmission Date: 20251020
  Serious: Yes (Hospitalization, Other)
  Sender: NOVARTIS
  Company Number: CN-002147023-NVSC2025CN102464

PATIENT
  Age: 70 Year
  Sex: Male
  Weight: 57.3 kg

DRUGS (5)
  1. CYCLOSPORINE [Suspect]
     Active Substance: CYCLOSPORINE
     Indication: Aplastic anaemia
     Dosage: 125.000 MG, BID
     Route: 048
     Dates: start: 20250529, end: 20250616
  2. LEUCOGEN [Concomitant]
     Active Substance: LEUCOGEN
     Indication: Full blood count decreased
     Dosage: 20.000 MG, TID
     Route: 048
     Dates: start: 20250519, end: 20250616
  3. ELTROMBOPAG OLAMINE [Concomitant]
     Active Substance: ELTROMBOPAG OLAMINE
     Indication: Aplastic anaemia
     Dosage: 50.000 MG, QD
     Route: 048
     Dates: start: 20250529, end: 20250616
  4. DANAZOL [Concomitant]
     Active Substance: DANAZOL
     Indication: Aplastic anaemia
     Dosage: 0.200 G, TID
     Route: 048
     Dates: start: 20250529, end: 20250618
  5. BATILOL [Concomitant]
     Active Substance: BATILOL
     Indication: Full blood count decreased
     Dosage: 50.000 MG, TID
     Route: 048
     Dates: start: 20250519, end: 20250616

REACTIONS (3)
  - Asthenia [Not Recovered/Not Resolved]
  - Dizziness [Not Recovered/Not Resolved]
  - Acute kidney injury [Not Recovered/Not Resolved]

NARRATIVE: CASE EVENT DATE: 20250616
